FAERS Safety Report 19949594 (Version 1)
Quarter: 2021Q4

REPORT INFORMATION
  Report Type: Spontaneous
  Country: US (occurrence: US)
  Receive Date: 20211012
  Receipt Date: 20211012
  Transmission Date: 20220303
  Serious: Yes (Other)
  Sender: FDA-Public Use
  Company Number: None

PATIENT
  Age: 9 Year
  Sex: Female

DRUGS (2)
  1. CYCLOPENTOLATE [Suspect]
     Active Substance: CYCLOPENTOLATE
     Indication: Diagnostic procedure
     Dosage: ?          OTHER FREQUENCY:1 DROP OU ONCE;
     Route: 047
     Dates: start: 20211001, end: 20211001
  2. CYCLOPENTOLATE [Suspect]
     Active Substance: CYCLOPENTOLATE
     Indication: Cycloplegia

REACTIONS (1)
  - Therapeutic product effect prolonged [None]

NARRATIVE: CASE EVENT DATE: 20211001
